FAERS Safety Report 11793195 (Version 1)
Quarter: 2015Q4

REPORT INFORMATION
  Report Type: Spontaneous
  Country: US (occurrence: None)
  Receive Date: 20151201
  Receipt Date: 20151201
  Transmission Date: 20160305
  Serious: No
  Sender: FDA-Public Use
  Company Number: None

PATIENT
  Age: 67 Year
  Sex: Female

DRUGS (2)
  1. ESCITALOPRAM 20MG ACCORD [Suspect]
     Active Substance: ESCITALOPRAM OXALATE
     Indication: DEPRESSION
     Dosage: 1 TAB  QD  ORAL
     Route: 048
     Dates: start: 20151029, end: 20151112
  2. ESCITALOPRAM 20MG ACCORD [Suspect]
     Active Substance: ESCITALOPRAM OXALATE
     Indication: ANXIETY
     Dosage: 1 TAB  QD  ORAL
     Route: 048
     Dates: start: 20151029, end: 20151112

REACTIONS (4)
  - Anxiety [None]
  - Product substitution issue [None]
  - Depression [None]
  - Product quality issue [None]

NARRATIVE: CASE EVENT DATE: 20151029
